FAERS Safety Report 21332723 (Version 3)
Quarter: 2023Q2

REPORT INFORMATION
  Report Type: Spontaneous
  Country: BR (occurrence: BR)
  Receive Date: 20220914
  Receipt Date: 20230512
  Transmission Date: 20230722
  Serious: Yes (Other)
  Sender: FDA-Public Use
  Company Number: BR-CELLTRION INC.-2022BR014722

PATIENT

DRUGS (6)
  1. INFLIXIMAB [Suspect]
     Active Substance: INFLIXIMAB
     Indication: Sjogren^s syndrome
     Dosage: 3 AMPOULES
     Route: 042
  2. ATENOLOL [Concomitant]
     Active Substance: ATENOLOL
     Dosage: 2 PILLS PER DAY
     Route: 048
  3. ASPIRIN [Concomitant]
     Active Substance: ASPIRIN
     Dosage: 1 PILL PER DAY
     Route: 048
  4. LOSARTAN [Concomitant]
     Active Substance: LOSARTAN
     Dosage: 1 PILL PER DAY
     Route: 048
  5. SIMVASTATIN [Concomitant]
     Active Substance: SIMVASTATIN
     Dosage: 1 PILL PER DAY
     Route: 048
  6. OMEPRAZOLE [Concomitant]
     Active Substance: OMEPRAZOLE
     Dosage: 2 PILLS PER DAY
     Route: 048

REACTIONS (4)
  - Sjogren^s syndrome [Unknown]
  - Stomatitis [Recovered/Resolved]
  - Pain [Recovered/Resolved]
  - Off label use [Unknown]
